FAERS Safety Report 11694846 (Version 3)
Quarter: 2015Q4

REPORT INFORMATION
  Report Type: Spontaneous
  Country: GB (occurrence: GB)
  Receive Date: 20151103
  Receipt Date: 20151120
  Transmission Date: 20160304
  Serious: Yes (Hospitalization)
  Sender: FDA-Public Use
  Company Number: GB-B.I. PHARMACEUTICALS,INC./RIDGEFIELD-2015-BI-58003UK

PATIENT
  Sex: Female
  Weight: 81.7 kg

DRUGS (10)
  1. PRADAXA [Suspect]
     Active Substance: DABIGATRAN ETEXILATE MESYLATE
     Indication: ATRIAL FIBRILLATION
     Dosage: 220 MG
     Route: 065
  2. ALLOPURINOL. [Concomitant]
     Active Substance: ALLOPURINOL
     Indication: GOUT
     Dosage: 300 MG
     Route: 048
     Dates: start: 20040712
  3. OMEPRAZOLE. [Suspect]
     Active Substance: OMEPRAZOLE
     Indication: PROPHYLAXIS
     Dosage: 40 MG
     Route: 048
     Dates: start: 20151020
  4. BUMETINIDE [Concomitant]
     Indication: HYPERTENSION
     Dosage: 2 MG
     Route: 048
     Dates: start: 20091113
  5. BISOPROLOL [Concomitant]
     Active Substance: BISOPROLOL
     Indication: ATRIAL FIBRILLATION
     Dosage: 3.75 MG
     Route: 048
     Dates: start: 20151005
  6. SODIUM BICARBONATE. [Concomitant]
     Active Substance: SODIUM BICARBONATE
     Indication: RENAL DISORDER
     Dosage: 3 G
     Route: 048
     Dates: start: 20060707
  7. COCODAMOL [Concomitant]
     Active Substance: ACETAMINOPHEN\CODEINE PHOSPHATE
     Indication: ARTHRITIS
     Dosage: 8 ANZ
     Route: 048
     Dates: start: 201407
  8. DIHYDROCODEINE [Concomitant]
     Active Substance: DIHYDROCODEINE
     Indication: PRODUCT USED FOR UNKNOWN INDICATION
     Route: 065
  9. DALTEPARIN [Concomitant]
     Active Substance: DALTEPARIN
     Indication: THROMBOSIS PROPHYLAXIS
     Dosage: 500 U
     Route: 058
     Dates: start: 20151020
  10. RAMIPRIL. [Concomitant]
     Active Substance: RAMIPRIL
     Indication: HYPERTENSION
     Dosage: 10 MG
     Route: 048
     Dates: start: 20091113

REACTIONS (6)
  - Upper gastrointestinal haemorrhage [Recovered/Resolved]
  - Skin haemorrhage [Recovered/Resolved]
  - Haematemesis [Recovered/Resolved]
  - Melaena [Recovered/Resolved]
  - Haemorrhage [Unknown]
  - Contusion [Recovered/Resolved]
